FAERS Safety Report 5208308-7 (Version None)
Quarter: 2007Q1

REPORT INFORMATION
  Report Type: 
  Country: None (occurrence: None)
  Receive Date: 20070110
  Receipt Date: 20070110
  Transmission Date: 20070707
  Serious: Yes (Hospitalization)
  Sender: FDA-Public Use
  Company Number: None

PATIENT
  Age: 68 Year
  Sex: Male
  Weight: 68.0396 kg

DRUGS (4)
  1. CAPECITABINE [Suspect]
     Indication: OESOPHAGEAL CARCINOMA
     Dosage: 250 MG/M2 BID = 1500MG TWICE DAILY X 10D PO
     Route: 048
     Dates: start: 20061227, end: 20070105
  2. OXALIPLATIN [Suspect]
     Indication: OESOPHAGEAL CARCINOMA
     Dosage: 50 MG /M2=90.5 MG DAYS 1+8 IV
     Route: 042
     Dates: start: 20061227
  3. OXALIPLATIN [Suspect]
     Indication: OESOPHAGEAL CARCINOMA
     Dosage: 50 MG /M2=90.5 MG DAYS 1+8 IV
     Route: 042
     Dates: start: 20070103
  4. TAXOTERE [Suspect]
     Dosage: 35 MG

REACTIONS (2)
  - COLITIS [None]
  - FEBRILE NEUTROPENIA [None]
